FAERS Safety Report 5082705-5 (Version None)
Quarter: 2006Q3

REPORT INFORMATION
  Report Type: 
  Country: None (occurrence: None)
  Receive Date: 20060814
  Receipt Date: 20060801
  Transmission Date: 20061208
  Serious: Yes (Death)
  Sender: FDA-Public Use
  Company Number: 2006BI009016

PATIENT
  Age: 64 Year
  Sex: Female

DRUGS (5)
  1. AVONEX [Suspect]
     Indication: MULTIPLE SCLEROSIS
     Dosage: 30 UG; QW; IM
     Route: 030
  2. AVONEX [Suspect]
     Indication: MULTIPLE SCLEROSIS
     Dosage: 30 UG; QW; IM
     Route: 030
  3. ROXANOL [Concomitant]
  4. DURAGESIC-100 [Concomitant]
  5. PLAVIX [Concomitant]

REACTIONS (4)
  - MULTIPLE SCLEROSIS [None]
  - MUSCULAR WEAKNESS [None]
  - PAIN [None]
  - PERIPHERAL VASCULAR DISORDER [None]
